FAERS Safety Report 10313988 (Version 1)
Quarter: 2014Q3

REPORT INFORMATION
  Report Type: Spontaneous
  Country: US (occurrence: None)
  Receive Date: 20140716
  Receipt Date: 20140716
  Transmission Date: 20150326
  Serious: Yes (Other)
  Sender: FDA-Public Use
  Company Number: US-H14001-14-00205

PATIENT
  Age: 92 Year
  Sex: Male

DRUGS (2)
  1. AMOXICILLIN/CLAVULANATE [Suspect]
     Active Substance: AMOXICILLIN\CLAVULANATE POTASSIUM
     Indication: ACUTE SINUSITIS
  2. COUMADIN (WARFARIN SODIUM) (UNKNOWN) (WARAFRIN SODIUM) [Concomitant]

REACTIONS (8)
  - Idiosyncratic drug reaction [None]
  - International normalised ratio increased [None]
  - Blood alkaline phosphatase increased [None]
  - Aspartate aminotransferase increased [None]
  - Decreased appetite [None]
  - Alanine aminotransferase increased [None]
  - Jaundice [None]
  - Drug-induced liver injury [None]
